FAERS Safety Report 12422745 (Version 4)
Quarter: 2016Q3

REPORT INFORMATION
  Report Type: Spontaneous
  Country: RO (occurrence: RO)
  Receive Date: 20160601
  Receipt Date: 20160720
  Transmission Date: 20161109
  Serious: Yes (Other)
  Sender: FDA-Public Use
  Company Number: RO-ASTRAZENECA-2016SE57630

PATIENT
  Age: 61 Year
  Sex: Male

DRUGS (1)
  1. BYDUREON [Suspect]
     Active Substance: EXENATIDE
     Route: 065
     Dates: start: 2012, end: 20160523

REACTIONS (4)
  - Papillary thyroid cancer [Unknown]
  - Thyroid mass [Unknown]
  - Goitre [Unknown]
  - Lymphadenopathy [Unknown]
